FAERS Safety Report 11359547 (Version 1)
Quarter: 2015Q3

REPORT INFORMATION
  Report Type: Spontaneous
  Country: US (occurrence: None)
  Receive Date: 20150807
  Receipt Date: 20150807
  Transmission Date: 20151125
  Serious: Yes (Disabling)
  Sender: FDA-Public Use
  Company Number: None

PATIENT
  Age: 88 Year
  Sex: Male

DRUGS (9)
  1. ASPIRIN BABY [Concomitant]
     Active Substance: ASPIRIN
  2. ANTACIDS COSTCO [Concomitant]
  3. METOPROLO [Concomitant]
     Active Substance: METOPROLOL
  4. TIMOLOL. [Concomitant]
     Active Substance: TIMOLOL
  5. RAMIPRIL. [Concomitant]
     Active Substance: RAMIPRIL
  6. ALPHAGAN P [Concomitant]
     Active Substance: BRIMONIDINE TARTRATE
  7. PREVACID 24 HR [Suspect]
     Active Substance: LANSOPRAZOLE
     Indication: GASTROOESOPHAGEAL REFLUX DISEASE
     Route: 048
     Dates: start: 20150504, end: 20150508
  8. LESCOL [Concomitant]
     Active Substance: FLUVASTATIN SODIUM
  9. FINASTERIDE. [Concomitant]
     Active Substance: FINASTERIDE

REACTIONS (2)
  - Chest pain [None]
  - Chest discomfort [None]

NARRATIVE: CASE EVENT DATE: 20150504
